FAERS Safety Report 12950802 (Version 4)
Quarter: 2017Q3

REPORT INFORMATION
  Report Type: Spontaneous
  Country: US (occurrence: US)
  Receive Date: 20161117
  Receipt Date: 20170926
  Transmission Date: 20171127
  Serious: No
  Sender: FDA-Public Use
  Company Number: US-GLAXOSMITHKLINE-US2016GSK169634

PATIENT
  Age: 56 Year
  Sex: Female

DRUGS (2)
  1. NUCALA [Suspect]
     Active Substance: MEPOLIZUMAB
     Indication: ASTHMA
     Dosage: 100 MG, MONTHLY
     Route: 042
     Dates: start: 20161111
  2. QVAR [Suspect]
     Active Substance: BECLOMETHASONE DIPROPIONATE

REACTIONS (21)
  - Myalgia [Recovered/Resolved]
  - Pain in extremity [Recovered/Resolved]
  - Rash [Recovered/Resolved]
  - Rash pruritic [Recovered/Resolved]
  - Hypophagia [Recovered/Resolved]
  - Food allergy [Recovered/Resolved]
  - Eosinophilic oesophagitis [Unknown]
  - Fatigue [Recovered/Resolved]
  - Malaise [Unknown]
  - Gait disturbance [Recovered/Resolved]
  - Condition aggravated [Unknown]
  - Middle insomnia [Recovered/Resolved]
  - Abdominal pain upper [Recovered/Resolved]
  - Therapy cessation [Recovered/Resolved]
  - Gastroenteritis eosinophilic [Unknown]
  - Back pain [Recovered/Resolved]
  - Muscular weakness [Recovered/Resolved]
  - Cough [Unknown]
  - Asthenia [Recovered/Resolved]
  - Rash erythematous [Recovered/Resolved]
  - Pruritus generalised [Recovered/Resolved]

NARRATIVE: CASE EVENT DATE: 201611
